FAERS Safety Report 25350237 (Version 1)
Quarter: 2025Q2

REPORT INFORMATION
  Report Type: Spontaneous
  Country: RU (occurrence: RU)
  Receive Date: 20250523
  Receipt Date: 20250523
  Transmission Date: 20250716
  Serious: Yes (Other)
  Sender: ROCHE
  Company Number: RU-ROCHE-3102097

PATIENT
  Age: 78 Year
  Sex: Female

DRUGS (4)
  1. ATEZOLIZUMAB [Suspect]
     Active Substance: ATEZOLIZUMAB
     Indication: Transitional cell carcinoma
     Dosage: THE LAST ADMINISITRATION DATE 25/MAR/2025
     Route: 042
     Dates: start: 20210408, end: 20230330
  2. ATEZOLIZUMAB [Suspect]
     Active Substance: ATEZOLIZUMAB
     Route: 042
     Dates: start: 20250128
  3. CARBOPLATIN [Concomitant]
     Active Substance: CARBOPLATIN
  4. GEMCITABINE [Concomitant]
     Active Substance: GEMCITABINE

REACTIONS (10)
  - Autoimmune arthritis [Unknown]
  - Immune-mediated thyroiditis [Unknown]
  - Autoimmune hypothyroidism [Unknown]
  - Blood thyroid stimulating hormone increased [Unknown]
  - Arthralgia [Unknown]
  - Disease progression [Unknown]
  - Neoplasm progression [Unknown]
  - Metastases to peritoneum [Unknown]
  - Metastases to lymph nodes [Unknown]
  - Metastases to liver [Unknown]

NARRATIVE: CASE EVENT DATE: 20211018
